FAERS Safety Report 9603759 (Version 1)
Quarter: 2013Q4

REPORT INFORMATION
  Report Type: Spontaneous
  Country: PT (occurrence: PT)
  Receive Date: 20131007
  Receipt Date: 20131007
  Transmission Date: 20140711
  Serious: Yes (Other)
  Sender: FDA-Public Use
  Company Number: PT-MYLANLABS-2013S1021453

PATIENT
  Age: 73 Year
  Sex: Male
  Weight: 95 kg

DRUGS (3)
  1. FOSINOPRIL [Suspect]
     Indication: HYPERTENSION
     Route: 048
     Dates: start: 20130817, end: 20130818
  2. INDAPAMIDA [Suspect]
     Indication: HYPERTENSION
     Route: 048
     Dates: start: 20130817, end: 20130818
  3. TRANXENE [Concomitant]
     Indication: PRODUCT USED FOR UNKNOWN INDICATION
     Dosage: 5 MG HARD CAPSULES
     Route: 048

REACTIONS (2)
  - Face oedema [Recovered/Resolved]
  - Lip oedema [Recovered/Resolved]
